FAERS Safety Report 10621125 (Version 2)
Quarter: 2014Q4

REPORT INFORMATION
  Report Type: Spontaneous
  Country: IT (occurrence: IT)
  Receive Date: 20141203
  Receipt Date: 20141203
  Transmission Date: 20150529
  Serious: Yes (Hospitalization)
  Sender: FDA-Public Use
  Company Number: IT-ROCHE-1497505

PATIENT
  Age: 83 Year
  Sex: Male

DRUGS (11)
  1. BENTELAN [Concomitant]
     Active Substance: BETAMETHASONE SODIUM PHOSPHATE
     Dosage: 4 MG /2 ML INJECTABLE SOLUTION
     Route: 065
     Dates: start: 20141029, end: 20141102
  2. ROCEFIN [Suspect]
     Active Substance: CEFTRIAXONE SODIUM
     Dosage: 2 GR FOR INFUSION
     Route: 065
     Dates: start: 20141029, end: 20141102
  3. LOSAPREX [Concomitant]
     Active Substance: LOSARTAN POTASSIUM
     Dosage: TAB 50 MG
     Route: 065
  4. LASITONE [Concomitant]
     Active Substance: FUROSEMIDE\SPIRONOLACTONE
     Dosage: 25 MG + 37 MG TAB
     Route: 065
  5. LYRICA [Concomitant]
     Active Substance: PREGABALIN
     Route: 065
  6. SINTROM [Suspect]
     Active Substance: ACENOCOUMAROL
     Indication: ATRIAL FIBRILLATION
     Dosage: TAB 4 MG
     Route: 048
     Dates: start: 20080110, end: 20141102
  7. PANTORC [Concomitant]
     Active Substance: PANTOPRAZOLE SODIUM
     Dosage: TAB 40 MG
     Route: 065
  8. CONGESCOR [Concomitant]
     Active Substance: BISOPROLOL
     Dosage: TAB 2, 5 MG
     Route: 065
  9. TOTALIP [Concomitant]
     Active Substance: ATORVASTATIN
     Dosage: TAB 10 MG
     Route: 065
  10. CO-EFFERALGAN [Concomitant]
     Active Substance: ACETAMINOPHEN\CODEINE PHOSPHATE
     Dosage: TAB 500 MG + 30 MG
     Route: 065
     Dates: start: 20141001, end: 20141102
  11. ROCEFIN [Suspect]
     Active Substance: CEFTRIAXONE SODIUM
     Indication: PRODUCT USED FOR UNKNOWN INDICATION
     Dosage: 1GR//3,5 ML FOR INTRAMUSCOLAR INJECTION
     Route: 030
     Dates: start: 20141023, end: 20141128

REACTIONS (2)
  - International normalised ratio increased [Recovering/Resolving]
  - Overdose [Unknown]

NARRATIVE: CASE EVENT DATE: 20141102
